FAERS Safety Report 8082980-9 (Version None)
Quarter: 2012Q1

REPORT INFORMATION
  Report Type: 
  Country: None (occurrence: None)
  Receive Date: 20120127
  Receipt Date: 20110308
  Transmission Date: 20120608
  Serious: No
  Sender: FDA-Public Use
  Company Number: US-ABBOTT-11P-163-0710445-00

PATIENT
  Sex: Female
  Weight: 73.548 kg

DRUGS (6)
  1. MULTI-VITAMIN [Concomitant]
     Indication: VITAMIN SUPPLEMENTATION
  2. METOPROLOL TARTRATE [Concomitant]
     Indication: HYPERTENSION
  3. ATACAND [Concomitant]
     Indication: CARDIAC FAILURE CONGESTIVE
  4. DERMA-SMOOTHE/FS [Concomitant]
     Indication: DRY SKIN
  5. RANITIDINE [Concomitant]
     Indication: GASTROOESOPHAGEAL REFLUX DISEASE
  6. HUMIRA [Suspect]
     Indication: PSORIASIS
     Dates: start: 20110214

REACTIONS (5)
  - INJECTION SITE REACTION [None]
  - INJECTION SITE VESICLES [None]
  - WRONG TECHNIQUE IN DRUG USAGE PROCESS [None]
  - DEVICE MALFUNCTION [None]
  - INCORRECT DOSE ADMINISTERED [None]
